FAERS Safety Report 22530142 (Version 1)
Quarter: 2023Q2

REPORT INFORMATION
  Report Type: Spontaneous
  Country: US (occurrence: US)
  Receive Date: 20230607
  Receipt Date: 20230607
  Transmission Date: 20230721
  Serious: No
  Sender: FDA-Public Use
  Company Number: US-BAYER-2023A073372

PATIENT
  Age: 16 Year
  Sex: Female

DRUGS (6)
  1. POLYETHYLENE GLYCOL 3350 [Suspect]
     Active Substance: POLYETHYLENE GLYCOL 3350
     Indication: Colonic lavage
     Dosage: 1 L/H
  2. INSULIN NOS [Concomitant]
     Active Substance: INSULIN NOS
     Dosage: 1U/KG, 5 U/KG/H
  3. NOREPINEPHRINE [Concomitant]
     Active Substance: NOREPINEPHRINE
     Dosage: 0.1 MCG/KG/MIN
  4. INSULIN NOS [Concomitant]
     Active Substance: INSULIN NOS
     Dosage: 1 U/KG/H
  5. EPINEPHRINE [Concomitant]
     Active Substance: EPINEPHRINE
     Dosage: UNK
  6. VASOPRESSIN [Concomitant]
     Active Substance: VASOPRESSIN
     Dosage: UNK

REACTIONS (3)
  - Off label use [None]
  - Incorrect route of product administration [None]
  - Drug ineffective for unapproved indication [None]
